FAERS Safety Report 21299591 (Version 2)
Quarter: 2022Q3

REPORT INFORMATION
  Report Type: Spontaneous
  Country: RO (occurrence: RO)
  Receive Date: 20220906
  Receipt Date: 20220906
  Transmission Date: 20221027
  Serious: Yes (Death, Other)
  Sender: FDA-Public Use
  Company Number: RO-EMA-DD-20200702-bhardwaj_r-130554

PATIENT
  Age: 63 Year
  Sex: Female

DRUGS (15)
  1. CYCLOSPORINE [Suspect]
     Active Substance: CYCLOSPORINE
     Indication: Dry eye
     Dosage: 1 MG/ML (ONE DROP/DAY)
     Route: 065
  2. CYCLOSPORINE [Suspect]
     Active Substance: CYCLOSPORINE
  3. AZATHIOPRINE [Suspect]
     Active Substance: AZATHIOPRINE
     Indication: Polychondritis
     Dosage: UNK
     Route: 065
  4. METHYLPREDNISOLONE [Suspect]
     Active Substance: METHYLPREDNISOLONE
     Indication: Polychondritis
     Dosage: 1 G, FOR THREE DAYS
     Route: 042
  5. METHYLPREDNISOLONE [Suspect]
     Active Substance: METHYLPREDNISOLONE
     Dosage: 1 MG/KG, DAILY (ONE MONTH WITH TAPERING)
     Route: 048
  6. INFLIXIMAB [Suspect]
     Active Substance: INFLIXIMAB
     Indication: Polychondritis
     Dosage: 3 MG/KG (A SINGLE INFUSION)
     Route: 065
  7. LEFLUNOMIDE [Suspect]
     Active Substance: LEFLUNOMIDE
     Indication: Polychondritis
     Dosage: 20 MG, EVERY DAY
     Route: 065
  8. LEFLUNOMIDE [Suspect]
     Active Substance: LEFLUNOMIDE
     Dosage: 10 MG, EVERY DAY
     Route: 065
  9. CYCLOPHOSPHAMIDE [Suspect]
     Active Substance: CYCLOPHOSPHAMIDE
     Indication: Polychondritis
     Dosage: 15 MG/KG MONTHLY
     Route: 042
  10. CYCLOPHOSPHAMIDE [Suspect]
     Active Substance: CYCLOPHOSPHAMIDE
     Dosage: UNK UNK, QMN
     Route: 048
  11. TOBRAMYCIN [Concomitant]
     Active Substance: TOBRAMYCIN
     Indication: Polychondritis
     Dosage: 3 MG
  12. OFLOXACIN [Concomitant]
     Active Substance: OFLOXACIN
     Indication: Polychondritis
     Dosage: 0.3 % (3 GUT/DAY)
  13. TROPICAMIDE [Concomitant]
     Active Substance: TROPICAMIDE
     Indication: Polychondritis
     Dosage: 1 % (3 GUT/DAY)
  14. TIMOLOL [Concomitant]
     Active Substance: TIMOLOL
     Indication: Polychondritis
     Dosage: 0.5 % (2 GUT/DAY)
  15. DEXAMETHASONE [Concomitant]
     Active Substance: DEXAMETHASONE
     Indication: Polychondritis
     Dosage: 1 MG (5 GUT/DAY)

REACTIONS (10)
  - Cardio-respiratory arrest [Fatal]
  - Drug intolerance [Unknown]
  - Hypertension [Unknown]
  - Renal failure [Unknown]
  - Escherichia sepsis [Recovering/Resolving]
  - Arthritis [Unknown]
  - Laryngeal disorder [Unknown]
  - Sinonasal papilloma [Unknown]
  - Diarrhoea [Recovering/Resolving]
  - Product use in unapproved indication [Unknown]
